FAERS Safety Report 18479850 (Version 1)
Quarter: 2020Q4

REPORT INFORMATION
  Report Type: Spontaneous
  Country: US (occurrence: US)
  Receive Date: 20201109
  Receipt Date: 20201109
  Transmission Date: 20210114
  Serious: Yes (Death)
  Sender: FDA-Public Use
  Company Number: US-AMERICAN REGENT INC-2020002336

PATIENT
  Age: 20 Year
  Sex: Female

DRUGS (5)
  1. DEXTROMETHORPHAN [Suspect]
     Active Substance: DEXTROMETHORPHAN
     Indication: TOXIC ENCEPHALOPATHY
     Dosage: UNK
     Route: 065
  2. METHOTREXATE. [Concomitant]
     Active Substance: METHOTREXATE
     Dosage: 5000 MG/M2/DOSE (HIGH DOSE) (INTERIM MAINTENANCE)
     Route: 042
  3. LEUCOVORIN CALCIUM INJECTION (0517-8605-25) [Suspect]
     Active Substance: LEUCOVORIN CALCIUM
     Indication: DRUG TOXICITY PROPHYLAXIS
     Dosage: UNK
     Route: 065
  4. AMINOPHYLLINE INJECTION, USP (3810-25) [Suspect]
     Active Substance: AMINOPHYLLINE
     Indication: TOXIC ENCEPHALOPATHY
     Dosage: UNK
     Route: 065
  5. METHOTREXATE. [Concomitant]
     Active Substance: METHOTREXATE
     Indication: B PRECURSOR TYPE ACUTE LEUKAEMIA
     Dosage: UNK (INDUCTION)
     Route: 037

REACTIONS (4)
  - Toxic encephalopathy [Fatal]
  - Drug ineffective [Fatal]
  - Product use in unapproved indication [Unknown]
  - Drug ineffective for unapproved indication [Fatal]
